FAERS Safety Report 25338360 (Version 1)
Quarter: 2025Q2

REPORT INFORMATION
  Report Type: Spontaneous
  Country: US (occurrence: US)
  Receive Date: 20250520
  Receipt Date: 20250520
  Transmission Date: 20250716
  Serious: No
  Sender: SANOFI AVENTIS
  Company Number: US-SA-2025SA143581

PATIENT
  Sex: Female
  Weight: 56.82 kg

DRUGS (1)
  1. DUPIXENT [Suspect]
     Active Substance: DUPILUMAB
     Indication: Ill-defined disorder
     Dosage: 1 DF, QOW
     Route: 058

REACTIONS (3)
  - Pain in extremity [Unknown]
  - Feeling hot [Unknown]
  - Erythema [Unknown]
